FAERS Safety Report 25518744 (Version 2)
Quarter: 2025Q3

REPORT INFORMATION
  Report Type: Spontaneous
  Country: US (occurrence: US)
  Receive Date: 20250704
  Receipt Date: 20250710
  Transmission Date: 20251021
  Serious: No
  Sender: MERCK SHARP & DOHME LLC
  Company Number: US-009507513-2303596

PATIENT
  Age: 1 Year

DRUGS (4)
  1. VARIVAX [Suspect]
     Active Substance: VARICELLA-ZOSTER VIRUS STRAIN OKA/MERCK LIVE ANTIGEN
     Indication: Prophylaxis
     Route: 065
     Dates: start: 20250617, end: 20250617
  2. STERILE DILUENT (WATER) [Suspect]
     Active Substance: WATER
     Route: 065
     Dates: start: 20250617, end: 20250617
  3. M-M-R II [Concomitant]
     Active Substance: MEASLES VIRUS STRAIN ENDERS^ ATTENUATED EDMONSTON LIVE ANTIGEN\MUMPS VIRUS STRAIN B LEVEL JERYL LYNN
     Indication: Prophylaxis
     Route: 065
     Dates: start: 20250617, end: 20250617
  4. Sterile diluent M-M-R II [Concomitant]
     Route: 065
     Dates: start: 20250617, end: 20250617

REACTIONS (2)
  - Product storage error [Unknown]
  - No adverse event [Unknown]

NARRATIVE: CASE EVENT DATE: 20250617
